FAERS Safety Report 9564824 (Version 2)
Quarter: 2013Q4

REPORT INFORMATION
  Report Type: Spontaneous
  Country: US (occurrence: US)
  Receive Date: 20130930
  Receipt Date: 20131114
  Transmission Date: 20140711
  Serious: No
  Sender: FDA-Public Use
  Company Number: US-JNJFOC-20130914069

PATIENT
  Sex: Female
  Weight: 104.33 kg

DRUGS (14)
  1. DURAGESIC [Suspect]
     Indication: PAIN
     Route: 062
  2. FENTANYL [Suspect]
     Indication: PAIN
     Route: 062
  3. FENTANYL [Suspect]
     Indication: PAIN
     Route: 062
  4. FENTANYL [Suspect]
     Indication: PAIN
     Route: 062
  5. ACETAMIN [Concomitant]
     Indication: PAIN
     Route: 048
  6. NORTRIPTYLINE [Concomitant]
     Indication: DEPRESSION
     Route: 048
  7. LORAZEPAM [Concomitant]
     Indication: ANXIETY
     Route: 048
  8. TRAZEPAM [Concomitant]
     Indication: SLEEP DISORDER
     Route: 065
  9. PANTOPRAZOLE [Concomitant]
     Indication: GASTRIC DISORDER
     Route: 048
  10. HYDRALAZINE [Concomitant]
     Indication: HYPERTENSION
     Route: 048
  11. ATENOLOL [Concomitant]
     Route: 048
  12. LOSARTAN [Concomitant]
     Route: 048
  13. AMLODIPINE [Concomitant]
     Route: 048
  14. SOMA [Concomitant]
     Indication: MUSCLE RELAXANT THERAPY
     Route: 048

REACTIONS (6)
  - Drug ineffective [Not Recovered/Not Resolved]
  - Wrong technique in drug usage process [Unknown]
  - Product outer packaging issue [Unknown]
  - Product quality issue [Unknown]
  - Product packaging issue [Unknown]
  - Product packaging quantity issue [Unknown]
